FAERS Safety Report 5068513-X (Version None)
Quarter: 2006Q3

REPORT INFORMATION
  Report Type: 
  Country: None (occurrence: None)
  Receive Date: 20060802
  Receipt Date: 20051031
  Transmission Date: 20061208
  Serious: No
  Sender: FDA-Public Use
  Company Number: US-BRISTOL-MYERS SQUIBB COMPANY-13162953

PATIENT
  Age: 5 Decade
  Sex: Female
  Weight: 60 kg

DRUGS (5)
  1. COUMADIN [Suspect]
  2. SYNTHROID [Concomitant]
  3. AMIODARONE HCL [Concomitant]
  4. PEPCID [Concomitant]
  5. TOPROL-XL [Concomitant]

REACTIONS (2)
  - INTERNATIONAL NORMALISED RATIO INCREASED [None]
  - MEDICATION ERROR [None]
